FAERS Safety Report 11270322 (Version 1)
Quarter: 2015Q3

REPORT INFORMATION
  Report Type: Report from Study
  Country: DE (occurrence: DE)
  Receive Date: 20150714
  Receipt Date: 20150714
  Transmission Date: 20151125
  Serious: Yes (Hospitalization)
  Sender: FDA-Public Use
  Company Number: DE-SA-2015SA099958

PATIENT
  Age: 71 Year
  Sex: Female

DRUGS (1)
  1. DRONEDARONE [Suspect]
     Active Substance: DRONEDARONE
     Indication: ATRIAL FIBRILLATION
     Route: 065
     Dates: start: 20130114, end: 20140813

REACTIONS (2)
  - Atrial fibrillation [Recovered/Resolved]
  - Cardioversion [Unknown]

NARRATIVE: CASE EVENT DATE: 20140625
